FAERS Safety Report 6180834-6 (Version None)
Quarter: 2009Q2

REPORT INFORMATION
  Report Type: 
  Country: None (occurrence: None)
  Receive Date: 20090506
  Receipt Date: 20090428
  Transmission Date: 20091009
  Serious: Yes (Other)
  Sender: FDA-Public Use
  Company Number: ES-BAYER-200918527GPV

PATIENT
  Age: 46 Year
  Sex: Female

DRUGS (3)
  1. MIRENA [Suspect]
     Indication: MENORRHAGIA
     Route: 015
     Dates: start: 20040527, end: 20080513
  2. MIRENA [Suspect]
     Route: 015
  3. SEROPRAM [Concomitant]
     Indication: DEPRESSION
     Route: 048

REACTIONS (1)
  - ENDOMETRIAL CANCER STAGE I [None]
